FAERS Safety Report 6321602-1 (Version None)
Quarter: 2009Q3

REPORT INFORMATION
  Report Type: 
  Country: None (occurrence: None)
  Receive Date: 20090820
  Receipt Date: 20090820
  Transmission Date: 20100115
  Serious: Yes (Disabling)
  Sender: FDA-Public Use
  Company Number: None

PATIENT
  Age: 66 Year
  Sex: Female
  Weight: 76.2043 kg

DRUGS (1)
  1. ZICAM [Suspect]
     Indication: NASOPHARYNGITIS
     Dosage: NASAL GEL 2X/DAY NASAL 5-7 DAYS 10 TO 14 APPLICATIONS
     Route: 045
     Dates: start: 20070201

REACTIONS (2)
  - ANOSMIA [None]
  - HYPOGEUSIA [None]
